FAERS Safety Report 7137837-4 (Version None)
Quarter: 2010Q4

REPORT INFORMATION
  Report Type: 
  Country: None (occurrence: None)
  Receive Date: 20101103
  Receipt Date: 20100408
  Transmission Date: 20110411
  Serious: Yes (Other)
  Sender: FDA-Public Use
  Company Number: 2010S1000176

PATIENT
  Sex: Male
  Weight: 72.5 kg

DRUGS (2)
  1. CUBICIN [Suspect]
     Indication: OSTEOMYELITIS
     Dosage: 8 MG/KG;Q24H;IVBOL
     Route: 040
  2. CEFEPIME [Concomitant]

REACTIONS (5)
  - CLOSTRIDIAL INFECTION [None]
  - ERYTHEMA [None]
  - HYPOAESTHESIA [None]
  - MYALGIA [None]
  - PAIN IN EXTREMITY [None]
